FAERS Safety Report 4902622-8 (Version None)
Quarter: 2006Q1

REPORT INFORMATION
  Report Type: 
  Country: None (occurrence: None)
  Receive Date: 20060207
  Receipt Date: 20060125
  Transmission Date: 20060701
  Serious: Yes (Hospitalization)
  Sender: FDA-Public Use
  Company Number: BE-BRISTOL-MYERS SQUIBB COMPANY-13259429

PATIENT
  Age: 34 Year
  Sex: Female
  Weight: 50 kg

DRUGS (7)
  1. ATAZANAVIR [Suspect]
     Indication: HIV INFECTION
     Route: 048
  2. RETROVIR [Concomitant]
     Route: 048
  3. VIREAD [Concomitant]
     Route: 048
  4. NORVIR [Concomitant]
     Route: 048
  5. DARAPRIM [Concomitant]
     Route: 048
  6. DAPSONE [Concomitant]
     Route: 048
  7. ALBUMIN (HUMAN) [Concomitant]
     Route: 042

REACTIONS (1)
  - INTESTINAL OBSTRUCTION [None]
